FAERS Safety Report 4705213-7 (Version None)
Quarter: 2005Q2

REPORT INFORMATION
  Report Type: 
  Country: None (occurrence: None)
  Receive Date: 20050630
  Receipt Date: 20050630
  Transmission Date: 20051028
  Serious: Yes (Other)
  Sender: FDA-Public Use
  Company Number: None

PATIENT
  Age: 47 Year
  Sex: Male
  Weight: 92 kg

DRUGS (2)
  1. TIAGABINE HCL [Suspect]
     Indication: POST-TRAUMATIC EPILEPSY
     Dosage: 4 MG PO BID
     Route: 048
     Dates: start: 20050425
  2. TIAGABINE HCL [Suspect]
     Indication: POST-TRAUMATIC EPILEPSY
     Dosage: 4 MG PO BID
     Route: 048
     Dates: start: 20050517

REACTIONS (1)
  - DYSARTHRIA [None]
